FAERS Safety Report 4919237-8 (Version None)
Quarter: 2006Q1

REPORT INFORMATION
  Report Type: 
  Country: None (occurrence: None)
  Receive Date: 20060222
  Receipt Date: 20050602
  Transmission Date: 20060701
  Serious: Yes (Hospitalization)
  Sender: FDA-Public Use
  Company Number: DE-ABBOTT-05P-062-0302484-00

PATIENT
  Sex: Male
  Weight: 65 kg

DRUGS (10)
  1. HUMIRA 40 MG/ 0.8 ML PRE-FILLED SYRINGE [Suspect]
     Indication: RHEUMATOID ARTHRITIS
     Route: 058
     Dates: start: 20040101, end: 20050501
  2. METHOTREXATE [Concomitant]
     Indication: RHEUMATOID ARTHRITIS
     Route: 048
     Dates: start: 19950101
  3. METHOTREXATE [Concomitant]
     Dates: start: 20040101
  4. METHOTREXATE [Concomitant]
     Dates: start: 20050501
  5. METHOTREXATE [Concomitant]
  6. METHOTREXATE [Concomitant]
  7. METHOTREXATE [Concomitant]
  8. VALORON [Concomitant]
     Indication: RHEUMATOID ARTHRITIS
     Route: 048
  9. CELECOXIB [Concomitant]
     Indication: RHEUMATOID ARTHRITIS
     Route: 048
  10. UNSPECIFIED CONTROL MEDICATION [Concomitant]
     Indication: DRUG USE FOR UNKNOWN INDICATION
     Dates: start: 20050719

REACTIONS (2)
  - LYMPHADENOPATHY [None]
  - WEIGHT DECREASED [None]
